FAERS Safety Report 5648587-5 (Version None)
Quarter: 2008Q1

REPORT INFORMATION
  Report Type: 
  Country: None (occurrence: None)
  Receive Date: 20080304
  Receipt Date: 20080227
  Transmission Date: 20080703
  Serious: Yes (Hospitalization)
  Sender: FDA-Public Use
  Company Number: US-BRISTOL-MYERS SQUIBB COMPANY-14094254

PATIENT
  Sex: Female

DRUGS (1)
  1. IXEMPRA [Suspect]
     Indication: BREAST CANCER METASTATIC
     Dosage: 2ND DOSE GIVEN ON 20FEB08
     Dates: start: 20080220, end: 20080220

REACTIONS (1)
  - RESTLESS LEGS SYNDROME [None]
